FAERS Safety Report 9590291 (Version 1)
Quarter: 2013Q4

REPORT INFORMATION
  Report Type: Spontaneous
  Country: US (occurrence: US)
  Receive Date: 20131003
  Receipt Date: 20131003
  Transmission Date: 20140711
  Serious: No
  Sender: FDA-Public Use
  Company Number: US-AMGEN-USASP2012075961

PATIENT
  Age: 36 Year
  Sex: Female

DRUGS (11)
  1. ENBREL [Suspect]
     Indication: PSORIASIS
     Dosage: 25 MG, 2 TIMES/WK
     Route: 058
  2. PROMETRIUM                         /00110701/ [Concomitant]
     Dosage: 100 MG, UNK
  3. SYNTHROID [Concomitant]
     Dosage: 88 MUG, UNK
  4. BUPROPION [Concomitant]
     Dosage: 100 MG, UNK
  5. PRAVASTATIN [Concomitant]
     Dosage: 10 MG, UNK
  6. METFORMIN [Concomitant]
     Dosage: 850 MG, UNK
  7. LISINOPRIL [Concomitant]
     Dosage: 5 MG, UNK
  8. OMEPRAZOLE [Concomitant]
     Dosage: 20 MG, UNK
  9. VICTOZA [Concomitant]
     Dosage: 18 MG/3 ML
  10. VITAMIN B12                        /00056201/ [Concomitant]
     Dosage: 1000 MUG, UNK
  11. MULTIVITAMINS WITH IRON            /02170101/ [Concomitant]
     Dosage: UNK

REACTIONS (3)
  - Injection site erythema [Unknown]
  - Injection site discomfort [Unknown]
  - Injection site pain [Unknown]
